FAERS Safety Report 8850433 (Version 1)
Quarter: 2012Q4

REPORT INFORMATION
  Report Type: 
  Country: GB (occurrence: GB)
  Receive Date: 20121019
  Receipt Date: 20121019
  Transmission Date: 20130627
  Serious: Yes (Death)
  Sender: FDA-Public Use
  Company Number: GB-BAXTER-2012BAX020609

PATIENT
  Age: 77 Year
  Sex: Female

DRUGS (10)
  1. ISOFLURANE [Suspect]
     Indication: GENERAL ANESTHESIA
  2. BENDROFLUAZIDE [Concomitant]
     Indication: DRUG USE FOR UNKNOWN INDICATION
  3. FERROUS SULFATE [Concomitant]
     Indication: DRUG USE FOR UNKNOWN INDICATION
  4. BUPIVACAINE [Concomitant]
     Indication: DRUG USE FOR UNKNOWN INDICATION
  5. FENTANYL [Concomitant]
     Indication: DRUG USE FOR UNKNOWN INDICATION
  6. PROPOFOL [Concomitant]
     Indication: GENERAL ANESTHESIA
     Route: 042
  7. NITROUS OXIDE [Concomitant]
     Indication: GENERAL ANESTHESIA
  8. TORADOL [Concomitant]
     Indication: GENERAL ANESTHESIA
  9. OXYGEN [Concomitant]
     Indication: DRUG USE FOR UNKNOWN INDICATION
  10. ROCURONIUM [Concomitant]
     Indication: GENERAL ANESTHESIA

REACTIONS (4)
  - Hepatotoxicity [Fatal]
  - No therapeutic response [None]
  - Unresponsive to stimuli [None]
  - Hepatic failure [None]
